FAERS Safety Report 6986932-9 (Version None)
Quarter: 2010Q3

REPORT INFORMATION
  Report Type: 
  Country: None (occurrence: None)
  Receive Date: 20100916
  Receipt Date: 20100908
  Transmission Date: 20110219
  Serious: Yes (Other)
  Sender: FDA-Public Use
  Company Number: US-BIOGENIDEC-2008BI026340

PATIENT
  Age: 34 Year
  Sex: Female

DRUGS (5)
  1. TYSABRI [Suspect]
     Indication: MULTIPLE SCLEROSIS
     Route: 042
     Dates: start: 20080228, end: 20080910
  2. TYSABRI [Suspect]
     Route: 042
     Dates: start: 20090901, end: 20090901
  3. XANAX [Concomitant]
  4. MULTI-VITAMIN [Concomitant]
  5. VITAMIN D [Concomitant]

REACTIONS (2)
  - BREAST CANCER [None]
  - BREAST CANCER FEMALE [None]
